FAERS Safety Report 9682787 (Version 2)
Quarter: 2014Q1

REPORT INFORMATION
  Report Type: Spontaneous
  Country: NL (occurrence: NL)
  Receive Date: 20131112
  Receipt Date: 20140211
  Transmission Date: 20141002
  Serious: Yes (Other)
  Sender: FDA-Public Use
  Company Number: PHHY2013NL126723

PATIENT
  Sex: Female

DRUGS (7)
  1. NEORAL [Suspect]
     Indication: RENAL TRANSPLANT
     Dosage: 100 MG, BID
     Route: 048
  2. NEORAL [Interacting]
     Dosage: 250 MG, BID
     Route: 048
  3. NEORAL [Interacting]
     Dosage: 300 MG, UNK
     Route: 048
  4. NEORAL [Interacting]
     Dosage: 350 MG, BID
     Route: 048
  5. NEORAL [Interacting]
     Dosage: 750 MG, BID
     Route: 048
  6. COLESTYRAMINE [Interacting]
     Indication: DIARRHOEA
  7. PREDNISOLONE [Concomitant]

REACTIONS (5)
  - Intestinal ischaemia [Unknown]
  - Mesenteric arterial occlusion [Unknown]
  - Drug interaction [Unknown]
  - Blood creatinine increased [Recovering/Resolving]
  - Diarrhoea [Unknown]
